FAERS Safety Report 11453575 (Version 1)
Quarter: 2015Q3

REPORT INFORMATION
  Report Type: Spontaneous
  Country: US (occurrence: US)
  Receive Date: 20150831
  Receipt Date: 20150831
  Transmission Date: 20151125
  Serious: No
  Sender: FDA-Public Use
  Company Number: US-ELI_LILLY_AND_COMPANY-US200912001235

PATIENT
  Age: 39 Year
  Sex: Female

DRUGS (16)
  1. LIBRAX [Concomitant]
     Active Substance: CHLORDIAZEPOXIDE HYDROCHLORIDE\CLIDINIUM BROMIDE
     Dosage: 1 D/F, 4/D
  2. ACIPHEX [Concomitant]
     Active Substance: RABEPRAZOLE SODIUM
     Dosage: 40 MG, DAILY (1/D)
  3. LASIX [Concomitant]
     Active Substance: FUROSEMIDE
     Dosage: 40 MG, DAILY (1/D)
  4. VYVANSE [Concomitant]
     Active Substance: LISDEXAMFETAMINE DIMESYLATE
  5. DARVOCET [Concomitant]
     Active Substance: ACETAMINOPHEN\PROPOXYPHENE HYDROCHLORIDE
     Dosage: 1 D/F, AS NEEDED
  6. VITAMINS [Concomitant]
     Active Substance: VITAMINS
  7. LEVSINEX [Concomitant]
     Active Substance: HYOSCYAMINE SULFATE
     Dosage: 0.375 MG, 2/D
  8. LORAZEPAM. [Concomitant]
     Active Substance: LORAZEPAM
     Dosage: 1 MG, AS NEEDED
  9. POTASSIUM [Concomitant]
     Active Substance: POTASSIUM
     Dosage: 20 MEQ, DAILY (1/D)
  10. LYRICA [Concomitant]
     Active Substance: PREGABALIN
     Dosage: UNK, OTHER
  11. FLEXERIL [Concomitant]
     Active Substance: CYCLOBENZAPRINE HYDROCHLORIDE
     Dosage: 10 MG, 3/D
  12. BACLOFEN. [Concomitant]
     Active Substance: BACLOFEN
     Dosage: 10 MG, 3/D
  13. HYDROCODONE [Concomitant]
     Active Substance: HYDROCODONE
     Dosage: 7.5 MG, AS NEEDED
  14. CYMBALTA [Suspect]
     Active Substance: DULOXETINE HYDROCHLORIDE
     Indication: MULTIPLE SCLEROSIS
     Dosage: 60 MG, DAILY (1/D)
     Route: 048
     Dates: start: 200903
  15. LUNESTA [Concomitant]
     Active Substance: ESZOPICLONE
     Dosage: 3 MG, EACH EVENING
  16. TRAMADOL. [Concomitant]
     Active Substance: TRAMADOL
     Dosage: 50 MG, 3/D

REACTIONS (9)
  - Paranoia [Recovered/Resolved]
  - Mood altered [Recovered/Resolved]
  - Somnolence [Not Recovered/Not Resolved]
  - Anger [Recovered/Resolved]
  - Serotonin syndrome [Recovered/Resolved]
  - Abnormal behaviour [Recovered/Resolved]
  - Hyperhidrosis [Not Recovered/Not Resolved]
  - Heart rate increased [Not Recovered/Not Resolved]
  - Psychiatric symptom [Recovered/Resolved]

NARRATIVE: CASE EVENT DATE: 200903
